FAERS Safety Report 13718434 (Version 1)
Quarter: 2017Q3

REPORT INFORMATION
  Report Type: Spontaneous
  Country: IN (occurrence: IN)
  Receive Date: 20170705
  Receipt Date: 20170705
  Transmission Date: 20171127
  Serious: Yes (Other)
  Sender: FDA-Public Use
  Company Number: PHHY2017IN093967

PATIENT
  Age: 42 Year
  Sex: Male

DRUGS (2)
  1. TACROLIMUS. [Suspect]
     Active Substance: TACROLIMUS
     Indication: IMMUNOSUPPRESSANT DRUG THERAPY
     Route: 065
  2. TACROLIMUS. [Suspect]
     Active Substance: TACROLIMUS
     Indication: LIVER TRANSPLANT

REACTIONS (7)
  - Fall [Recovering/Resolving]
  - Bradykinesia [Recovering/Resolving]
  - Muscle rigidity [Recovering/Resolving]
  - Tremor [Recovering/Resolving]
  - Parkinsonism [Recovering/Resolving]
  - Repetitive speech [Recovering/Resolving]
  - Freezing phenomenon [Recovering/Resolving]
